FAERS Safety Report 5508067-4 (Version None)
Quarter: 2007Q4

REPORT INFORMATION
  Report Type: 
  Country: None (occurrence: None)
  Receive Date: 20071106
  Receipt Date: 20071029
  Transmission Date: 20080405
  Serious: Yes (Disabling)
  Sender: FDA-Public Use
  Company Number: CA-SHR-CA-2007-040608

PATIENT
  Sex: Female

DRUGS (1)
  1. MIRENA [Suspect]
     Dosage: 20 A?G/DAY, CONT
     Route: 015

REACTIONS (5)
  - FIBROMYALGIA [None]
  - HYPERSENSITIVITY [None]
  - IUCD COMPLICATION [None]
  - OEDEMA PERIPHERAL [None]
  - VAGINAL DISCHARGE [None]
